FAERS Safety Report 9792136 (Version 1)
Quarter: 2013Q4

REPORT INFORMATION
  Report Type: Spontaneous
  Country: US (occurrence: None)
  Receive Date: 20131231
  Receipt Date: 20131231
  Transmission Date: 20140711
  Serious: Yes (Other)
  Sender: FDA-Public Use
  Company Number: None

PATIENT
  Age: 87 Year
  Sex: Female
  Weight: 90 kg

DRUGS (2)
  1. LATANOPROST [Suspect]
     Indication: GLAUCOMA
     Route: 047
     Dates: start: 20130311
  2. TRAVATAN [Suspect]
     Route: 047
     Dates: start: 20130404

REACTIONS (3)
  - Ocular hyperaemia [None]
  - Eye pruritus [None]
  - Blindness [None]
